FAERS Safety Report 6053951-9 (Version None)
Quarter: 2009Q1

REPORT INFORMATION
  Report Type: 
  Country: None (occurrence: None)
  Receive Date: 20090123
  Receipt Date: 20090123
  Transmission Date: 20090719
  Serious: Yes (Other)
  Sender: FDA-Public Use
  Company Number: None

PATIENT
  Age: 70 Year
  Sex: Male

DRUGS (1)
  1. LAMOTRIGINE [Suspect]
     Indication: BIPOLAR I DISORDER
     Dosage: 25 MG BID PO
     Route: 048
     Dates: start: 20071211, end: 20081216

REACTIONS (2)
  - SKIN DISCOLOURATION [None]
  - STOMATITIS [None]
